FAERS Safety Report 9916162 (Version 1)
Quarter: 2014Q1

REPORT INFORMATION
  Report Type: Spontaneous
  Country: AU (occurrence: None)
  Receive Date: 20140219
  Receipt Date: 20140219
  Transmission Date: 20141002
  Serious: Yes (Hospitalization)
  Sender: FDA-Public Use
  Company Number: AU-ALKEM-000490

PATIENT
  Age: 63 Year
  Sex: Male

DRUGS (2)
  1. MYCOPHENOLATE MOFETIL [Suspect]
     Indication: IMMUNOSUPPRESSION
     Dosage: 1.00 G 2.00 TIMES PER 1 DAYS / ORAL
     Route: 048
  2. PREDNISOLONE [Suspect]
     Indication: IMMUNOSUPPRESSION
     Dosage: 30.00 MG 1.0 DAYS / ORAL
     Route: 048

REACTIONS (7)
  - Polyarthritis [None]
  - Rheumatoid arthritis [None]
  - Angina unstable [None]
  - Anaemia [None]
  - Hyperglycaemia [None]
  - Abasia [None]
  - Transplant rejection [None]
